FAERS Safety Report 12113822 (Version 1)
Quarter: 2016Q1

REPORT INFORMATION
  Report Type: Spontaneous
  Country: US (occurrence: None)
  Receive Date: 20160224
  Receipt Date: 20160224
  Transmission Date: 20160526
  Serious: No
  Sender: FDA-Public Use
  Company Number: None

PATIENT
  Age: 51 Year
  Sex: Male

DRUGS (1)
  1. CITALOPRAM [Suspect]
     Active Substance: CITALOPRAM HYDROBROMIDE
     Dosage: 1
     Route: 048
     Dates: start: 20160216, end: 20160223

REACTIONS (2)
  - Drug withdrawal syndrome [None]
  - Product formulation issue [None]

NARRATIVE: CASE EVENT DATE: 20160223
